FAERS Safety Report 6437939-1 (Version None)
Quarter: 2009Q4

REPORT INFORMATION
  Report Type: 
  Country: None (occurrence: None)
  Receive Date: 20091112
  Receipt Date: 20081017
  Transmission Date: 20100525
  Serious: No
  Sender: FDA-Public Use
  Company Number: US-ASTRAZENECA-2009UW15767

PATIENT
  Age: 80 Year
  Sex: Female

DRUGS (5)
  1. PRILOSEC OTC [Suspect]
     Indication: DYSPEPSIA
     Dosage: 1 TABLET, 1 /DAY
     Route: 048
     Dates: start: 20080717, end: 20081016
  2. BLOOD PRESSURE MEDICATION [Concomitant]
  3. SYNTHROID [Concomitant]
  4. VITAMINS NOS [Concomitant]
  5. ASPIRIN [Concomitant]

REACTIONS (2)
  - INCORRECT DRUG ADMINISTRATION DURATION [None]
  - PRURITUS [None]
